FAERS Safety Report 5284793-X (Version None)
Quarter: 2007Q2

REPORT INFORMATION
  Report Type: 
  Country: None (occurrence: None)
  Receive Date: 20070403
  Receipt Date: 20070328
  Transmission Date: 20071010
  Serious: Yes (Death, Other)
  Sender: FDA-Public Use
  Company Number: CZ-BRISTOL-MYERS SQUIBB COMPANY-13730361

PATIENT

DRUGS (8)
  1. CYTOXAN [Suspect]
     Indication: B-CELL LYMPHOMA
  2. DOXORUBICIN HCL [Suspect]
     Indication: B-CELL LYMPHOMA
  3. VINCRISTINE [Suspect]
     Indication: B-CELL LYMPHOMA
  4. ETOPOSIDE [Suspect]
     Indication: B-CELL LYMPHOMA
  5. CISPLATIN [Suspect]
     Indication: B-CELL LYMPHOMA
  6. PREDNISONE [Suspect]
     Indication: B-CELL LYMPHOMA
  7. CYTARABINE [Suspect]
     Indication: B-CELL LYMPHOMA
  8. MELPHALAN [Suspect]
     Indication: B-CELL LYMPHOMA

REACTIONS (2)
  - DRUG TOXICITY [None]
  - MALIGNANT NEOPLASM PROGRESSION [None]
